FAERS Safety Report 5714624-2 (Version None)
Quarter: 2008Q2

REPORT INFORMATION
  Report Type: 
  Country: None (occurrence: None)
  Receive Date: 20080423
  Receipt Date: 20080414
  Transmission Date: 20081010
  Serious: Yes (Hospitalization)
  Sender: FDA-Public Use
  Company Number: B0516775A

PATIENT
  Age: 53 Year
  Sex: Male

DRUGS (2)
  1. FORTUM [Suspect]
     Indication: WOUND INFECTION PSEUDOMONAS
     Route: 051
     Dates: start: 20080206
  2. FOSFOCINE [Suspect]
     Indication: WOUND INFECTION PSEUDOMONAS
     Route: 042
     Dates: start: 20080206

REACTIONS (3)
  - OEDEMA PERIPHERAL [None]
  - PRURITUS [None]
  - URTICARIA [None]
